FAERS Safety Report 8408378 (Version 4)
Quarter: 2013Q2

REPORT INFORMATION
  Report Type: Report from Study
  Country: US (occurrence: US)
  Receive Date: 20120216
  Receipt Date: 20130523
  Transmission Date: 20140414
  Serious: Yes (Death, Hospitalization)
  Sender: FDA-Public Use
  Company Number: US-CELGENEUS-163-21880-12021298

PATIENT
  Age: 78 Year
  Sex: Male
  Weight: 74.41 kg

DRUGS (17)
  1. REVLIMID [Suspect]
     Indication: DIFFUSE LARGE B-CELL LYMPHOMA
     Dosage: 5 MILLIGRAM
     Route: 048
     Dates: start: 20120120, end: 20120123
  2. EVEROLIMUS [Suspect]
     Indication: DIFFUSE LARGE B-CELL LYMPHOMA
     Dosage: 5 MILLIGRAM
     Route: 048
     Dates: start: 20120120, end: 20120123
  3. ATENOLOL [Concomitant]
     Indication: PRODUCT USED FOR UNKNOWN INDICATION
     Dosage: 25 MILLIGRAM
     Route: 065
  4. LIPITOR [Concomitant]
     Indication: PRODUCT USED FOR UNKNOWN INDICATION
     Dosage: 40 MILLIGRAM
     Route: 065
  5. CELEBREX [Concomitant]
     Indication: PRODUCT USED FOR UNKNOWN INDICATION
     Dosage: 200 MILLIGRAM
     Route: 065
  6. DEXAMETHASONE [Concomitant]
     Indication: PRODUCT USED FOR UNKNOWN INDICATION
     Dosage: 8 MILLIGRAM
     Route: 065
  7. FLUCONAZOLE [Concomitant]
     Indication: PNEUMONIA
     Dosage: 200 MILLIGRAM
     Route: 065
  8. LEVAQUIN [Concomitant]
     Indication: PNEUMONIA
     Dosage: 500 MILLIGRAM
     Route: 065
  9. MAGNESIUM OXIDE [Concomitant]
     Indication: PRODUCT USED FOR UNKNOWN INDICATION
     Dosage: 400 MILLIGRAM
     Route: 065
  10. FLAGYL [Concomitant]
     Indication: PNEUMONIA
     Dosage: 500 MILLIGRAM
     Route: 065
  11. NYSTATIN [Concomitant]
     Indication: PRODUCT USED FOR UNKNOWN INDICATION
     Route: 048
  12. OXYCODONE [Concomitant]
     Indication: PAIN
     Dosage: 5 MILLIGRAM
     Route: 065
  13. OXYCODONE [Concomitant]
     Dosage: 15 MILLIGRAM
     Route: 065
  14. OXYCONTIN [Concomitant]
     Indication: PAIN
     Dosage: 30 MILLIGRAM
     Route: 065
  15. DOCUSATE SENNA [Concomitant]
     Indication: PRODUCT USED FOR UNKNOWN INDICATION
     Route: 048
  16. PACKED RED BLOOD CELLS [Concomitant]
     Indication: ANAEMIA
     Dosage: 2 UNITS
     Route: 065
  17. OXYGEN [Concomitant]
     Indication: PRODUCT USED FOR UNKNOWN INDICATION
     Dosage: 2 LITERS
     Route: 045

REACTIONS (1)
  - Diffuse large B-cell lymphoma [Fatal]
